FAERS Safety Report 7865507-3 (Version None)
Quarter: 2011Q4

REPORT INFORMATION
  Report Type: 
  Country: None (occurrence: None)
  Receive Date: 20111028
  Receipt Date: 20110110
  Transmission Date: 20120403
  Serious: No
  Sender: FDA-Public Use
  Company Number: US-GLAXOSMITHKLINE-A0904945A

PATIENT
  Age: 66 Year
  Sex: Female

DRUGS (6)
  1. LEVOXYL [Concomitant]
  2. ZOLOFT [Concomitant]
  3. ADVAIR DISKUS 100/50 [Suspect]
     Indication: CHRONIC OBSTRUCTIVE PULMONARY DISEASE
     Dosage: 1PUFF TWICE PER DAY
     Route: 055
     Dates: start: 20020101
  4. SPIRIVA [Concomitant]
  5. SINGULAIR [Concomitant]
  6. OXYGEN [Concomitant]

REACTIONS (3)
  - PRODUCT QUALITY ISSUE [None]
  - DRUG INEFFECTIVE [None]
  - FEELING ABNORMAL [None]
